FAERS Safety Report 9826823 (Version 3)
Quarter: 2014Q1

REPORT INFORMATION
  Report Type: Spontaneous
  Country: US (occurrence: None)
  Receive Date: 20140115
  Receipt Date: 20140131
  Transmission Date: 20141002
  Serious: Yes (Death, Life-Threatening)
  Sender: FDA-Public Use
  Company Number: AMAG201400001

PATIENT
  Age: 53 Year
  Sex: Male
  Weight: 85 kg

DRUGS (1)
  1. FERAHEME [Suspect]
     Indication: IRON DEFICIENCY ANAEMIA
     Dosage: 510 MG, SINGLE, IV PUSH
     Route: 042
     Dates: start: 20140107, end: 20140107

REACTIONS (5)
  - Cardio-respiratory arrest [None]
  - Unresponsive to stimuli [None]
  - Anaphylactic reaction [None]
  - Flushing [None]
  - Nausea [None]
